FAERS Safety Report 18033731 (Version 1)
Quarter: 2020Q3

REPORT INFORMATION
  Report Type: Spontaneous
  Country: GB (occurrence: GB)
  Receive Date: 20200716
  Receipt Date: 20200716
  Transmission Date: 20201103
  Serious: Yes (Disabling)
  Sender: FDA-Public Use
  Company Number: GB-MYLANLABS-2020M1063605

PATIENT
  Age: 40 Year
  Sex: Male

DRUGS (3)
  1. RISPERIDONE. [Suspect]
     Active Substance: RISPERIDONE
     Indication: PSYCHOTIC DISORDER
     Dosage: 5 MILLIGRAM
     Route: 048
     Dates: start: 20200605
  2. LORAZEPAM. [Concomitant]
     Active Substance: LORAZEPAM
     Dosage: UNK
  3. CHLORPROMAZINE. [Concomitant]
     Active Substance: CHLORPROMAZINE
     Dosage: UNK

REACTIONS (1)
  - Mouth ulceration [Unknown]

NARRATIVE: CASE EVENT DATE: 20200623
